FAERS Safety Report 6268979-3 (Version None)
Quarter: 2009Q3

REPORT INFORMATION
  Report Type: 
  Country: None (occurrence: None)
  Receive Date: 20090714
  Receipt Date: 20090714
  Transmission Date: 20100115
  Serious: No
  Sender: FDA-Public Use
  Company Number: None

PATIENT
  Sex: Female
  Weight: 61.6892 kg

DRUGS (1)
  1. ACTONEL [Suspect]
     Indication: OSTEOPENIA
     Dosage: 1 TABLET ONCE PER WEEK PO
     Route: 048
     Dates: start: 20061021, end: 20090529

REACTIONS (6)
  - ARTHRALGIA [None]
  - BONE PAIN [None]
  - CHEST DISCOMFORT [None]
  - MUSCLE SPASMS [None]
  - MYALGIA [None]
  - NO THERAPEUTIC RESPONSE [None]
